FAERS Safety Report 7704858-X (Version None)
Quarter: 2011Q3

REPORT INFORMATION
  Report Type: 
  Country: None (occurrence: None)
  Receive Date: 20110823
  Receipt Date: 20110819
  Transmission Date: 20111222
  Serious: Yes (Death)
  Sender: FDA-Public Use
  Company Number: ES-EISAI INC-E2090-01726-SPO-ES

PATIENT
  Age: 11 Year
  Sex: Male
  Weight: 54 kg

DRUGS (2)
  1. ZONEGRAN [Suspect]
     Dosage: 350 MG DAILY (150 MG IN AM AND 200 MG IN PM)
     Route: 048
     Dates: start: 20100628, end: 20110626
  2. OMEPRAZOLE [Concomitant]
     Indication: ABDOMINAL PAIN UPPER
     Dosage: UNKNOWN
     Route: 048
     Dates: start: 20100401, end: 20110626

REACTIONS (2)
  - HYPERTHERMIA [None]
  - ANHIDROSIS [None]
